FAERS Safety Report 6631663-8 (Version None)
Quarter: 2010Q1

REPORT INFORMATION
  Report Type: 
  Country: None (occurrence: None)
  Receive Date: 20100312
  Receipt Date: 20100305
  Transmission Date: 20100710
  Serious: Yes (Hospitalization)
  Sender: FDA-Public Use
  Company Number: BR-ASTRAZENECA-2010SE10036

PATIENT
  Age: 37 Year
  Sex: Female

DRUGS (2)
  1. SEROQUEL [Suspect]
     Indication: SCHIZOPHRENIA
     Route: 048
     Dates: start: 20020101
  2. TETREX [Concomitant]
     Indication: HYPERTHYROIDISM
     Route: 048
     Dates: start: 20050101

REACTIONS (2)
  - BLOOD PRESSURE DECREASED [None]
  - SCHIZOPHRENIA SIMPLE [None]
